FAERS Safety Report 8546920-8 (Version None)
Quarter: 2012Q3

REPORT INFORMATION
  Report Type: 
  Country: None (occurrence: None)
  Receive Date: 20120727
  Receipt Date: 20120123
  Transmission Date: 20120928
  Serious: No
  Sender: FDA-Public Use
  Company Number: US-ASTRAZENECA-2012SE03877

PATIENT
  Age: 48 Year
  Sex: Male
  Weight: 79.4 kg

DRUGS (2)
  1. SEROQUEL XR [Suspect]
     Indication: INSOMNIA
     Route: 048
  2. SEROQUEL XR [Suspect]
     Route: 048

REACTIONS (7)
  - MALAISE [None]
  - DRUG PRESCRIBING ERROR [None]
  - ADVERSE DRUG REACTION [None]
  - DEPRESSION [None]
  - INSOMNIA [None]
  - ANXIETY [None]
  - DRUG DOSE OMISSION [None]
